FAERS Safety Report 5503611-5 (Version None)
Quarter: 2007Q4

REPORT INFORMATION
  Report Type: 
  Country: None (occurrence: None)
  Receive Date: 20071031
  Receipt Date: 20071015
  Transmission Date: 20080405
  Serious: Yes (Other)
  Sender: FDA-Public Use
  Company Number: 2007S1010206

PATIENT
  Age: 22 Year
  Sex: Male

DRUGS (7)
  1. BISOMERCK PLUS /01166101/ (BISELECT /01166101) [Suspect]
     Indication: DRUG USE FOR UNKNOWN INDICATION
     Dosage: ORAL
     Route: 048
     Dates: start: 20071012
  2. ALCOHOL /00002101/ (ETHANOL) [Suspect]
     Indication: DRUG USE FOR UNKNOWN INDICATION
     Dosage: ORAL
     Route: 048
     Dates: start: 20071012
  3. ACETYLSALICYLIC ACID SRT [Suspect]
     Indication: DRUG USE FOR UNKNOWN INDICATION
     Dosage: ORAL
     Route: 048
     Dates: start: 20071012
  4. DATURA SUAVEOLENS (NO PREF. NAME) [Suspect]
     Indication: DRUG USE FOR UNKNOWN INDICATION
     Dosage: ORAL
     Route: 048
     Dates: start: 20071012
  5. SOLIDAGO /00672901/ (SOLIDAGO /00672901/) [Suspect]
     Indication: DRUG USE FOR UNKNOWN INDICATION
     Dosage: 50 ML; ORAL
     Route: 048
     Dates: start: 20071012
  6. TRAUMEEL S /01124601/ (TRAUMEEL S /01124601/ ) [Suspect]
     Indication: DRUG USE FOR UNKNOWN INDICATION
     Dosage: 30 ML; ORAL
     Route: 048
     Dates: start: 20071012
  7. URTICA /01653002/ (URTICA SPP. EXTRACT) [Suspect]
     Indication: DRUG USE FOR UNKNOWN INDICATION
     Dosage: 50 ML; ORAL
     Route: 048
     Dates: start: 20071012

REACTIONS (3)
  - ATAXIA [None]
  - BRADYCARDIA [None]
  - MULTIPLE DRUG OVERDOSE [None]
